FAERS Safety Report 18241764 (Version 1)
Quarter: 2020Q3

REPORT INFORMATION
  Report Type: Spontaneous
  Country: US (occurrence: US)
  Receive Date: 20200907
  Receipt Date: 20200907
  Transmission Date: 20201103
  Serious: No
  Sender: FDA-Public Use
  Company Number: None

PATIENT
  Age: 74 Year
  Sex: Female
  Weight: 63 kg

DRUGS (8)
  1. ROSUVASTATIN. [Concomitant]
     Active Substance: ROSUVASTATIN
  2. VITAMIN D3 [Concomitant]
     Active Substance: CHOLECALCIFEROL
  3. RESTASIS [Concomitant]
     Active Substance: CYCLOSPORINE
  4. INSTAFLEX [Concomitant]
     Active Substance: DIETARY SUPPLEMENT
  5. PROLIA [Concomitant]
     Active Substance: DENOSUMAB
  6. FINASTERIDE. [Suspect]
     Active Substance: FINASTERIDE
  7. SPIRONOLACTONE 50 MG TABLETS [Suspect]
     Active Substance: SPIRONOLACTONE
     Indication: ALOPECIA
     Dosage: ?          QUANTITY:1 TABLET(S);?
     Route: 048
     Dates: start: 20200219, end: 20200819
  8. VITAMIN C [Concomitant]
     Active Substance: ASCORBIC ACID

REACTIONS (3)
  - Breast enlargement [None]
  - Breast cancer [None]
  - Breast pain [None]

NARRATIVE: CASE EVENT DATE: 20200803
